FAERS Safety Report 16596701 (Version 1)
Quarter: 2019Q3

REPORT INFORMATION
  Report Type: Spontaneous
  Country: GB (occurrence: GB)
  Receive Date: 20190719
  Receipt Date: 20190719
  Transmission Date: 20191004
  Serious: Yes (Other)
  Sender: FDA-Public Use
  Company Number: GB-ACCORD-139163

PATIENT
  Age: 44 Year
  Sex: Male

DRUGS (2)
  1. PREDNISOLONE. [Concomitant]
     Active Substance: PREDNISOLONE
  2. MYCOPHENOLATE MOFETIL/MYCOPHENOLATE SODIUM/MYCOPHENOLIC ACID [Suspect]
     Active Substance: MYCOPHENOLIC ACID
     Indication: BIRDSHOT CHORIORETINOPATHY
     Dosage: ALSO RECEIVED 2 G GRAM FROM MAR-2019 TO 29-APR-2019
     Route: 048
     Dates: start: 20190311, end: 201903

REACTIONS (3)
  - Self-injurious ideation [Unknown]
  - Depressed mood [Recovered/Resolved]
  - Off label use [Unknown]

NARRATIVE: CASE EVENT DATE: 20190410
